FAERS Safety Report 17789604 (Version 4)
Quarter: 2020Q3

REPORT INFORMATION
  Report Type: Spontaneous
  Country: US (occurrence: US)
  Receive Date: 20200514
  Receipt Date: 20200724
  Transmission Date: 20201102
  Serious: No
  Sender: FDA-Public Use
  Company Number: US-ACTELION-A-NJ2020-205120

PATIENT
  Age: 53 Year
  Sex: Female

DRUGS (3)
  1. WARFARIN [Concomitant]
     Active Substance: WARFARIN
  2. TRACLEER [Suspect]
     Active Substance: BOSENTAN
     Indication: PULMONARY HYPERTENSION
     Dosage: 125 MG, BID
     Route: 048
  3. UPTRAVI [Suspect]
     Active Substance: SELEXIPAG
     Indication: PULMONARY HYPERTENSION
     Dosage: 800 MCG, BID
     Route: 048

REACTIONS (13)
  - Fatigue [Unknown]
  - Nasal congestion [Unknown]
  - Pain in jaw [Unknown]
  - Diarrhoea [Unknown]
  - Cough [Unknown]
  - Condition aggravated [Unknown]
  - Ear pain [Unknown]
  - Headache [Unknown]
  - Restless legs syndrome [Unknown]
  - Feeling abnormal [Unknown]
  - Heart rate increased [Unknown]
  - Anxiety [Unknown]
  - Insomnia [Unknown]

NARRATIVE: CASE EVENT DATE: 20200508
